FAERS Safety Report 20417447 (Version 1)
Quarter: 2022Q1

REPORT INFORMATION
  Report Type: Spontaneous
  Country: CN (occurrence: CN)
  Receive Date: 20220202
  Receipt Date: 20220202
  Transmission Date: 20220423
  Serious: Yes (Other)
  Sender: FDA-Public Use
  Company Number: CN-PFIZER INC-202200123684

PATIENT
  Age: 54 Year
  Sex: Female
  Weight: 53 kg

DRUGS (1)
  1. METHYLPREDNISOLONE SODIUM SUCCINATE [Suspect]
     Active Substance: METHYLPREDNISOLONE SODIUM SUCCINATE
     Indication: Post procedural complication
     Dosage: 40 MG, 1X/DAY
     Route: 041
     Dates: start: 20220115, end: 20220117

REACTIONS (3)
  - Glaucoma [Recovering/Resolving]
  - Dysgeusia [Recovering/Resolving]
  - Rhinalgia [Recovering/Resolving]

NARRATIVE: CASE EVENT DATE: 20220116
